FAERS Safety Report 10235539 (Version 1)
Quarter: 2014Q2

REPORT INFORMATION
  Report Type: Spontaneous
  Country: DE (occurrence: DE)
  Receive Date: 20140613
  Receipt Date: 20140613
  Transmission Date: 20141212
  Serious: Yes (Other)
  Sender: FDA-Public Use
  Company Number: DE-SA-2014SA076505

PATIENT
  Sex: 0

DRUGS (1)
  1. LEFLUNOMIDE [Suspect]
     Indication: PRODUCT USED FOR UNKNOWN INDICATION
     Route: 048
     Dates: end: 2014

REACTIONS (1)
  - Polyneuropathy [Not Recovered/Not Resolved]
